FAERS Safety Report 25597188 (Version 1)
Quarter: 2025Q3

REPORT INFORMATION
  Report Type: Spontaneous
  Country: JP (occurrence: JP)
  Receive Date: 20250723
  Receipt Date: 20250723
  Transmission Date: 20251021
  Serious: Yes (Other)
  Sender: EISAI
  Company Number: JP-Eisai-202003109_LEN-HCC_P_1

PATIENT
  Age: 74 Year
  Sex: Female
  Weight: 50 kg

DRUGS (3)
  1. LENVIMA [Suspect]
     Active Substance: LENVATINIB
     Indication: Hepatocellular carcinoma
     Dates: start: 20200721, end: 20200726
  2. LENVIMA [Suspect]
     Active Substance: LENVATINIB
     Dates: start: 20200728, end: 20200816
  3. LENVIMA [Suspect]
     Active Substance: LENVATINIB
     Dates: start: 20200817, end: 20200823

REACTIONS (1)
  - Tumour lysis syndrome [Recovered/Resolved]

NARRATIVE: CASE EVENT DATE: 20200727
